FAERS Safety Report 5156871-7 (Version None)
Quarter: 2006Q4

REPORT INFORMATION
  Report Type: 
  Country: None (occurrence: None)
  Receive Date: 20061115
  Receipt Date: 20061101
  Transmission Date: 20070319
  Serious: Yes (Other)
  Sender: FDA-Public Use
  Company Number: 148182ISR

PATIENT
  Age: 83 Year
  Sex: Male

DRUGS (2)
  1. DICLOFENAC SODIUM [Suspect]
  2. CLOPIDOGREL [Suspect]
     Dosage: 75 MG (75 MG, 1 IN 1 D)

REACTIONS (7)
  - EYE HAEMORRHAGE [None]
  - HYPERTENSION [None]
  - PROCEDURAL COMPLICATION [None]
  - RETINAL DETACHMENT [None]
  - VISUAL ACUITY REDUCED [None]
  - VITREOUS DISORDER [None]
  - VITREOUS HAEMORRHAGE [None]
